FAERS Safety Report 22958410 (Version 7)
Quarter: 2023Q4

REPORT INFORMATION
  Report Type: Report from Study
  Country: CN (occurrence: CN)
  Receive Date: 20230919
  Receipt Date: 20231128
  Transmission Date: 20240110
  Serious: Yes (Hospitalization)
  Sender: FDA-Public Use
  Company Number: CN-PFIZER INC-PV202300156182

PATIENT
  Age: 55 Year
  Sex: Female
  Weight: 55 kg

DRUGS (13)
  1. ENCORAFENIB [Suspect]
     Active Substance: ENCORAFENIB
     Indication: Colon cancer
     Dosage: 300 MG, 1X/DAY
     Route: 048
     Dates: start: 20230208, end: 20230910
  2. CETUXIMAB [Suspect]
     Active Substance: CETUXIMAB
     Indication: Colon cancer
     Dosage: 765 MG, Q2W
     Route: 042
     Dates: start: 20230208, end: 20230908
  3. FLUOROURACIL [Suspect]
     Active Substance: FLUOROURACIL
     Indication: Colon cancer
     Dosage: 2500 MG, Q2W
     Route: 042
     Dates: start: 20230208, end: 20230727
  4. OXALIPLATIN [Suspect]
     Active Substance: OXALIPLATIN
     Indication: Colon cancer
     Dosage: 78 MG, Q2W
     Route: 042
     Dates: start: 20230208, end: 20230727
  5. LEUCOVORIN CALCIUM [Suspect]
     Active Substance: LEUCOVORIN CALCIUM
     Indication: Colon cancer
     Dosage: 664 MG, Q2W
     Route: 042
     Dates: start: 20230208, end: 20230727
  6. LEUCOGEN [Concomitant]
     Active Substance: LEUCOGEN
     Indication: Prophylaxis
     Dosage: 20 MG, 3X/DAY LICOJUN
     Route: 048
     Dates: start: 20230210
  7. OMEPRAZOLE SODIUM [Concomitant]
     Active Substance: OMEPRAZOLE SODIUM
     Indication: Prophylaxis
     Dosage: 60 MG, ONCE
     Route: 041
     Dates: start: 20230825, end: 20230825
  8. MA YING LONG HEMORRHOIDS [Concomitant]
     Indication: Haemorrhoids
     Dosage: 20 G, 3X/DAY RECEIVE AS NEEDED
     Route: 061
     Dates: start: 20230303
  9. DEXAMETHASONE SODIUM PHOSPHATE [Concomitant]
     Active Substance: DEXAMETHASONE PHOSPHATE\DEXAMETHASONE SODIUM PHOSPHATE
     Indication: Premedication
     Dosage: 2 MG, ONCE INTRAVENOUS PUSH
     Dates: start: 20230825, end: 20230825
  10. PROMETHAZINE HYDROCHLORIDE [Concomitant]
     Active Substance: PROMETHAZINE HYDROCHLORIDE
     Indication: Premedication
     Dosage: 12.5 MG, ONCE
     Route: 030
     Dates: start: 20230825, end: 20230825
  11. PHOSPHOLIPID [Concomitant]
     Active Substance: PHOSPHOLIPID
     Indication: Prophylaxis
     Dosage: 456 MG, 3X/DAY
     Route: 048
     Dates: start: 20230302
  12. DIOSMIN [Concomitant]
     Active Substance: DIOSMIN
     Indication: Haemorrhoids
     Dosage: 0.9 G, 2X/DAY
     Route: 048
     Dates: start: 20230331
  13. FERRIC POLYSACCHARIDE COMPLEX [Concomitant]
     Active Substance: FERRIC POLYSACCHARIDE COMPLEX
     Indication: Anaemia
     Dosage: 0.3 G, 1X/DAY
     Route: 048
     Dates: start: 20230412

REACTIONS (1)
  - Anaemia [Recovered/Resolved]

NARRATIVE: CASE EVENT DATE: 20230908
